FAERS Safety Report 9428274 (Version 2)
Quarter: 2013Q4

REPORT INFORMATION
  Report Type: Spontaneous
  Country: US (occurrence: US)
  Receive Date: 20130730
  Receipt Date: 20131018
  Transmission Date: 20140711
  Serious: No
  Sender: FDA-Public Use
  Company Number: US-TEVA-422042USA

PATIENT
  Sex: Female
  Weight: 47.67 kg

DRUGS (1)
  1. COPAXONE [Suspect]
     Indication: MULTIPLE SCLEROSIS
     Dosage: QOD

REACTIONS (2)
  - Immunoglobulins decreased [Not Recovered/Not Resolved]
  - Lipoatrophy [Not Recovered/Not Resolved]
